FAERS Safety Report 8090432-5 (Version None)
Quarter: 2012Q1

REPORT INFORMATION
  Report Type: 
  Country: None (occurrence: None)
  Receive Date: 20120129
  Receipt Date: 20111120
  Transmission Date: 20120608
  Serious: No
  Sender: FDA-Public Use
  Company Number: US-ABBOTT-11P-163-0876005-00

PATIENT
  Age: 48 Year
  Sex: Female

DRUGS (1)
  1. HUMIRA [Suspect]
     Indication: PSORIATIC ARTHROPATHY
     Dates: start: 20110501

REACTIONS (8)
  - PYREXIA [None]
  - BLOOD IRON DECREASED [None]
  - HAEMATOCRIT DECREASED [None]
  - OROPHARYNGEAL PAIN [None]
  - FATIGUE [None]
  - FEELING ABNORMAL [None]
  - DIZZINESS [None]
  - ASTHENIA [None]
